FAERS Safety Report 4367731-3 (Version None)
Quarter: 2004Q2

REPORT INFORMATION
  Report Type: 
  Country: None (occurrence: None)
  Receive Date: 20040527
  Receipt Date: 20040206
  Transmission Date: 20050107
  Serious: Yes (Other)
  Sender: FDA-Public Use
  Company Number: 358470

PATIENT
  Sex: Female

DRUGS (1)
  1. LARIAM [Suspect]
     Indication: MALARIA PROPHYLAXIS
     Dosage: ORAL
     Route: 048
     Dates: start: 20030915

REACTIONS (4)
  - ANXIETY [None]
  - OBSESSIVE THOUGHTS [None]
  - PANIC ATTACK [None]
  - SUICIDAL IDEATION [None]
